FAERS Safety Report 24269696 (Version 2)
Quarter: 2024Q3

REPORT INFORMATION
  Report Type: Report from Study
  Country: US (occurrence: US)
  Receive Date: 20240830
  Receipt Date: 20240909
  Transmission Date: 20241017
  Serious: Yes (Hospitalization, Other)
  Sender: ACADIA PHARMACEUTICALS
  Company Number: US-ACADIA PHARMACEUTICALS INC.-ACA-2024-PIM-004653

PATIENT
  Sex: Male

DRUGS (6)
  1. NUPLAZID [Suspect]
     Active Substance: PIMAVANSERIN TARTRATE
     Indication: Parkinson^s disease psychosis
     Dosage: 34 MILLIGRAM, QD
     Route: 048
     Dates: start: 202201
  2. NUPLAZID [Suspect]
     Active Substance: PIMAVANSERIN TARTRATE
     Indication: Parkinson^s disease
  3. NUPLAZID [Suspect]
     Active Substance: PIMAVANSERIN TARTRATE
     Indication: Dyskinesia
  4. DUOPA [Concomitant]
     Active Substance: CARBIDOPA\LEVODOPA
     Indication: Parkinson^s disease
     Dosage: (100ML X 7) ADMINISTER CONTENTS OF 1 CASSETTE FOR UP TO 16 HOURS EACH DAY. MORNING DOSE:7.6 ML, CONT
  5. DUOPA [Concomitant]
     Active Substance: CARBIDOPA\LEVODOPA
     Indication: Dyskinesia
  6. DUOPA [Concomitant]
     Active Substance: CARBIDOPA\LEVODOPA
     Indication: Parkinsonism

REACTIONS (4)
  - Aspiration [Unknown]
  - Pneumonia [Unknown]
  - Hallucination [Recovered/Resolved]
  - Intentional dose omission [Recovered/Resolved]
